FAERS Safety Report 9085438 (Version 1)
Quarter: 2013Q1

REPORT INFORMATION
  Report Type: Report from Study
  Country: US (occurrence: US)
  Receive Date: 20130131
  Receipt Date: 20130131
  Transmission Date: 20140127
  Serious: No
  Sender: FDA-Public Use
  Company Number: US-ABBOTT-12P-163-0998465-00

PATIENT
  Sex: Female

DRUGS (7)
  1. HUMIRA [Suspect]
     Indication: PSORIATIC ARTHROPATHY
     Route: 058
     Dates: start: 201205, end: 201206
  2. HUMIRA [Suspect]
     Route: 058
     Dates: start: 201206, end: 201207
  3. HUMIRA [Suspect]
     Route: 058
     Dates: start: 201207, end: 201210
  4. CELEBREX [Concomitant]
     Indication: PSORIATIC ARTHROPATHY
  5. CLARITIN [Concomitant]
     Indication: PRODUCT USED FOR UNKNOWN INDICATION
  6. SIMVAST [Concomitant]
     Indication: PRODUCT USED FOR UNKNOWN INDICATION
  7. VERAMYST [Concomitant]
     Indication: PRODUCT USED FOR UNKNOWN INDICATION

REACTIONS (2)
  - Pain [Not Recovered/Not Resolved]
  - Pain [Not Recovered/Not Resolved]
